FAERS Safety Report 6244551-6 (Version None)
Quarter: 2009Q2

REPORT INFORMATION
  Report Type: 
  Country: None (occurrence: None)
  Receive Date: 20090625
  Receipt Date: 20090622
  Transmission Date: 20091009
  Serious: Yes (Life-Threatening, Hospitalization, Disabling, Other)
  Sender: FDA-Public Use
  Company Number: DE-WYE-H09825809

PATIENT
  Sex: Male

DRUGS (73)
  1. RAPAMUNE [Suspect]
     Indication: PROPHYLAXIS AGAINST TRANSPLANT REJECTION
     Route: 048
     Dates: start: 20030709, end: 20030711
  2. RAPAMUNE [Suspect]
     Route: 048
     Dates: start: 20030712, end: 20030717
  3. RAPAMUNE [Suspect]
     Route: 048
     Dates: start: 20030718, end: 20030725
  4. RAPAMUNE [Suspect]
     Route: 048
     Dates: start: 20030726, end: 20030731
  5. RAPAMUNE [Suspect]
     Dosage: ^1 MG SINGLE DOSE^
     Route: 048
     Dates: start: 20030804, end: 20030813
  6. RAPAMUNE [Suspect]
     Route: 048
     Dates: start: 20030815, end: 20030816
  7. RAPAMUNE [Suspect]
     Route: 048
     Dates: start: 20030818, end: 20030916
  8. RAPAMUNE [Suspect]
     Route: 048
     Dates: start: 20030917, end: 20031012
  9. RAPAMUNE [Suspect]
     Route: 048
     Dates: start: 20031013, end: 20031126
  10. RAPAMUNE [Suspect]
     Route: 048
     Dates: start: 20031127, end: 20040331
  11. DACLIZUMAB [Concomitant]
     Indication: PROPHYLAXIS AGAINST TRANSPLANT REJECTION
     Dosage: 140 MG SINGLE DOSE
     Route: 042
     Dates: start: 20030709, end: 20030709
  12. DACLIZUMAB [Concomitant]
     Dosage: 75 MG
     Route: 042
     Dates: start: 20030723, end: 20030723
  13. DACLIZUMAB [Concomitant]
     Dosage: 65 MG
     Route: 042
     Dates: start: 20030806, end: 20030806
  14. DACLIZUMAB [Concomitant]
     Dosage: 60 MG
     Route: 042
     Dates: start: 20030820, end: 20030820
  15. DACLIZUMAB [Concomitant]
     Dosage: 70 MG
     Route: 042
     Dates: start: 20030903, end: 20030903
  16. SOLU DACORTIN H [Suspect]
     Indication: PROPHYLAXIS AGAINST TRANSPLANT REJECTION
     Dosage: DOSE VARIED
     Route: 042
     Dates: start: 20030709, end: 20030710
  17. PREDNISOLONE [Suspect]
     Indication: PROPHYLAXIS AGAINST TRANSPLANT REJECTION
     Dosage: DOSE VARIED
     Route: 042
     Dates: start: 20030709
  18. PREDNISONE [Suspect]
     Indication: PROPHYLAXIS AGAINST TRANSPLANT REJECTION
     Dosage: DOSE VARIED
     Route: 048
     Dates: start: 20030710
  19. ACETYLSALICYLIC ACID SRT [Suspect]
     Route: 048
     Dates: start: 20030710, end: 20030715
  20. CLOPIDOGREL [Suspect]
     Route: 048
     Dates: start: 20030710, end: 20030715
  21. PROGRAF [Suspect]
     Indication: PROPHYLAXIS AGAINST TRANSPLANT REJECTION
     Dosage: UNSPECIFIED
     Dates: start: 20040402
  22. RISPERIDONE [Concomitant]
     Dosage: UNSPECIFIED
  23. MAGNESIOCARD [Concomitant]
     Dosage: UNSPECIFIED
  24. AMPICILLIN AND SULBACTAM [Concomitant]
     Dosage: UNSPECIFIED
     Dates: start: 20030710, end: 20031126
  25. KEPINOL [Concomitant]
     Dosage: UNSPECIFIED
     Dates: start: 20030710
  26. NORVASC [Concomitant]
     Dosage: UNSPECIFIED
     Dates: start: 20030709, end: 20030710
  27. NORVASC [Concomitant]
     Dosage: UNSPECIFIED
     Dates: start: 20030711
  28. AMPHOTERICIN B [Concomitant]
     Dosage: UNSPECIFIED
  29. DILATREND [Concomitant]
     Dosage: UNSPECIFIED
     Dates: start: 20030712
  30. PRAVASTATIN SODIUM [Concomitant]
     Dosage: UNSPECIFIED
     Dates: start: 20030712, end: 20041212
  31. TRANXILIUM [Concomitant]
     Dosage: UNSPECIFIED
  32. LACTULOSE [Concomitant]
     Dosage: UNSPECIFIED
     Dates: end: 20031113
  33. MAALOXAN [Concomitant]
     Dosage: UNSPECIFIED
     Dates: start: 20030715, end: 20030715
  34. CORDAREX [Concomitant]
     Dosage: UNSPECIFIED
     Dates: start: 20030712, end: 20030921
  35. PERLINGANIT [Concomitant]
     Dosage: UNSPECIFIED
     Dates: start: 20030712, end: 20030716
  36. EBRANTIL [Concomitant]
     Dosage: UNSPECIFIED
     Dates: start: 20030714, end: 20030718
  37. HEPARIN SODIUM [Concomitant]
     Dosage: UNSPECIFIED
     Dates: start: 20030711, end: 20030812
  38. ACTRAPHANE HM [Concomitant]
  39. MOLSIDOMINE [Concomitant]
     Dosage: UNSPECIFIED
     Dates: start: 20030717, end: 20030921
  40. ISOSORBIDE DINITRATE [Concomitant]
     Dosage: UNSPECIFIED
     Dates: start: 20030717, end: 20030921
  41. SPASMEX [Concomitant]
     Dosage: UNSPECIFIED
     Dates: end: 20030805
  42. ACETYLCYSTEINE [Concomitant]
     Dosage: UNSPECIFIED
     Dates: start: 20030801, end: 20030812
  43. ACETYLCYSTEINE [Concomitant]
     Dosage: UNSPECIFIED
     Dates: start: 20040325
  44. SALVIATHYMOL [Concomitant]
     Dosage: UNSPECIFIED
     Dates: start: 20030802, end: 20030911
  45. RANITIDINE [Concomitant]
     Dosage: UNSPECIFIED
     Dates: end: 20030806
  46. EPOETIN ALFA [Concomitant]
     Dosage: UNSPECIFIED
     Dates: start: 20030726, end: 20030812
  47. ACTONEL [Concomitant]
     Dosage: UNSPECIFIED
     Dates: end: 20031113
  48. ROCALTROL [Concomitant]
     Dosage: UNSPECIFIED
  49. PANTOZOL [Concomitant]
     Dosage: UNSPECIFIED
     Dates: start: 20030720
  50. CIPROBAY [Concomitant]
     Dosage: UNSPECIFIED
     Dates: start: 20030909, end: 20031115
  51. TAMSULOSIN HYDROCHLORIDE [Concomitant]
     Dosage: UNSPECIFIED
  52. ARANESP [Concomitant]
     Dosage: UNSPECIFIED
     Dates: start: 20030813, end: 20040325
  53. ACTRAPID HUMAN [Concomitant]
     Dosage: UNSPECIFIED
     Dates: start: 20030711
  54. LOCOL [Concomitant]
     Dosage: UNSPECIFIED
     Dates: start: 20031213
  55. ATROVENT [Concomitant]
     Dosage: UNSPECIFIED
     Dates: start: 20030809, end: 20030910
  56. CEFOTIAM [Concomitant]
     Dosage: UNSPECIFIED
     Dates: start: 20030821, end: 20030826
  57. CEFTRIAXONE [Concomitant]
     Dosage: UNSPECIFIED
     Dates: start: 20031114, end: 20031218
  58. CEFUROXIME [Concomitant]
     Dosage: UNSPECIFIED
     Dates: start: 20030826, end: 20030829
  59. CLONIDINE [Concomitant]
     Dosage: UNSPECIFIED
     Dates: start: 20030101, end: 20030714
  60. METRONIDAZOLE HCL [Concomitant]
     Dosage: UNSPECIFIED
     Dates: start: 20030821, end: 20041218
  61. DOXAZOSIN MESYLATE [Concomitant]
     Dosage: UNSPECIFIED
     Dates: start: 20040712
  62. ENALAPRIL MALEATE [Concomitant]
     Dosage: UNSPECIFIED
     Dates: start: 20040712
  63. FERRO SANOL DUODENAL [Concomitant]
     Dosage: UNSPECIFIED
     Dates: start: 20031021, end: 20040324
  64. FLUCONAZOLE [Concomitant]
     Dosage: UNSPECIFIED
     Dates: start: 20030801, end: 20030818
  65. FUROSEMIDE INTENSOL [Concomitant]
     Dosage: UNSPECIFIED
     Dates: start: 20030712, end: 20030823
  66. HEXETIDINE [Concomitant]
     Dosage: UNSPECIFIED
     Dates: start: 20030724, end: 20030803
  67. METOPROLOL SUCCINATE [Concomitant]
     Dosage: UNSPECIFIED
     Dates: start: 20030709, end: 20030712
  68. AVELOX [Concomitant]
     Dosage: UNSPECIFIED
     Dates: start: 20030724, end: 20030803
  69. AVELOX [Concomitant]
     Dosage: UNSPECIFIED
     Dates: start: 20040325, end: 20040415
  70. PANTOPRAZOLE SODIUM [Concomitant]
     Dosage: UNSPECIFIED
     Dates: start: 20030716, end: 20030720
  71. SULTANOL [Concomitant]
  72. TAZOBAC [Concomitant]
     Dosage: UNSPECIFIED
     Dates: start: 20030731, end: 20030811
  73. MYCOPHENOLATE MOFETIL [Suspect]
     Indication: PROPHYLAXIS AGAINST TRANSPLANT REJECTION
     Dosage: DOSE VARIED
     Route: 048
     Dates: start: 20030709

REACTIONS (16)
  - ABDOMINAL HERNIA [None]
  - ACUTE ABDOMEN [None]
  - ACUTE CORONARY SYNDROME [None]
  - BLOOD CREATININE INCREASED [None]
  - DIVERTICULITIS [None]
  - ESCHERICHIA URINARY TRACT INFECTION [None]
  - GASTROINTESTINAL HAEMORRHAGE [None]
  - INTESTINAL PROLAPSE [None]
  - LARYNGITIS BACTERIAL [None]
  - LARYNGITIS FUNGAL [None]
  - LYMPHOCELE [None]
  - MYOCARDIAL INFARCTION [None]
  - OESOPHAGEAL CANDIDIASIS [None]
  - PNEUMONIA [None]
  - URETERIC STENOSIS [None]
  - WOUND DEHISCENCE [None]
